FAERS Safety Report 4369782-1 (Version None)
Quarter: 2004Q2

REPORT INFORMATION
  Report Type: 
  Country: None (occurrence: None)
  Receive Date: 20040525
  Receipt Date: 20040513
  Transmission Date: 20050107
  Serious: Yes (Hospitalization)
  Sender: FDA-Public Use
  Company Number: 2004030847

PATIENT
  Age: 77 Year
  Sex: Female

DRUGS (2)
  1. ZITHROMAX [Suspect]
     Indication: UPPER RESPIRATORY TRACT INFLAMMATION
     Dosage: 500 MG (, 1 D), ORAL
     Route: 048
     Dates: start: 20040427, end: 20040429
  2. PRAVASTATIN SODIUM [Concomitant]

REACTIONS (2)
  - ARTERIOSCLEROSIS [None]
  - COLITIS ISCHAEMIC [None]
